FAERS Safety Report 6237719-6 (Version None)
Quarter: 2009Q2

REPORT INFORMATION
  Report Type: 
  Country: None (occurrence: None)
  Receive Date: 20090617
  Receipt Date: 20090604
  Transmission Date: 20091009
  Serious: Yes (Death, Life-Threatening, Hospitalization, Other)
  Sender: FDA-Public Use
  Company Number: INT_00015_2009

PATIENT
  Age: 55 Year
  Sex: Female

DRUGS (3)
  1. CEFEPIME [Suspect]
     Indication: FEBRILE NEUTROPENIA
     Dosage: (2 G 2X)
  2. AMIKACIN [Suspect]
     Indication: FEBRILE NEUTROPENIA
     Dosage: (1 G 1X)
  3. DIAZEPAM [Concomitant]

REACTIONS (4)
  - CONVULSION [None]
  - LOSS OF CONSCIOUSNESS [None]
  - RENAL FAILURE [None]
  - SEPSIS [None]
